FAERS Safety Report 9718153 (Version 1)
Quarter: 2013Q4

REPORT INFORMATION
  Report Type: Spontaneous
  Country: US (occurrence: US)
  Receive Date: 20131125
  Receipt Date: 20131125
  Transmission Date: 20140711
  Serious: No
  Sender: FDA-Public Use
  Company Number: US-VIVUS-2013V1000523

PATIENT
  Age: 38 Year
  Sex: Female
  Weight: 85.81 kg

DRUGS (11)
  1. QSYMIA 3.75MG/23MG [Suspect]
     Indication: WEIGHT DECREASED
     Route: 048
     Dates: start: 20130625, end: 20130708
  2. QSYMIA 7.5MG/46MG [Suspect]
     Indication: WEIGHT DECREASED
     Route: 048
     Dates: start: 20130709
  3. SYNTHROID [Concomitant]
     Indication: HORMONE REPLACEMENT THERAPY
  4. CYMBALTA [Concomitant]
     Indication: BACK PAIN
     Dates: start: 2012
  5. VITAMIN B12 [Concomitant]
     Indication: VITAMIN SUPPLEMENTATION
  6. VITAMIN D [Concomitant]
     Indication: VITAMIN SUPPLEMENTATION
  7. BIOTIN [Concomitant]
     Indication: VITAMIN SUPPLEMENTATION
  8. CALCIUM/MAGNESIUM/ZINC COMBINATION [Concomitant]
     Indication: MINERAL SUPPLEMENTATION
  9. NEXIUM [Concomitant]
     Indication: GASTROOESOPHAGEAL REFLUX DISEASE
     Dates: start: 201307
  10. SOMOTIDINE [Concomitant]
     Indication: GASTROOESOPHAGEAL REFLUX DISEASE
     Dates: start: 201307
  11. METAMUCIL [Concomitant]
     Indication: MEDICAL DIET

REACTIONS (2)
  - Food craving [Not Recovered/Not Resolved]
  - Fatigue [Recovering/Resolving]
